FAERS Safety Report 9845456 (Version 3)
Quarter: 2014Q1

REPORT INFORMATION
  Report Type: Report from Study
  Country: CA (occurrence: CA)
  Receive Date: 20140127
  Receipt Date: 20140225
  Transmission Date: 20141002
  Serious: Yes (Other)
  Sender: FDA-Public Use
  Company Number: PHHY2014CA006877

PATIENT
  Age: 22 Year
  Sex: Male

DRUGS (3)
  1. GILENYA [Suspect]
     Indication: RELAPSING-REMITTING MULTIPLE SCLEROSIS
     Dosage: 0.5 MG, QD
     Route: 048
     Dates: start: 20140116, end: 20140117
  2. GILENYA [Suspect]
     Dosage: 0.5 MG, QD
     Route: 048
  3. CIPRALEX [Concomitant]
     Dosage: 10 MG, QD

REACTIONS (5)
  - Electrocardiogram QRS complex prolonged [Recovered/Resolved]
  - Sinus bradycardia [Recovered/Resolved]
  - Fatigue [Recovered/Resolved]
  - Blood pressure decreased [Unknown]
  - Dizziness [Unknown]
